FAERS Safety Report 9377343 (Version 1)
Quarter: 2013Q3

REPORT INFORMATION
  Report Type: Spontaneous
  Country: AT (occurrence: AT)
  Receive Date: 20130701
  Receipt Date: 20130701
  Transmission Date: 20140515
  Serious: Yes (Other)
  Sender: FDA-Public Use
  Company Number: PHHY2013AT059354

PATIENT
  Sex: Female

DRUGS (2)
  1. GILENYA [Suspect]
     Route: 048
  2. GILENYA [Suspect]
     Route: 048

REACTIONS (1)
  - Lymphocyte count abnormal [Not Recovered/Not Resolved]
